FAERS Safety Report 9776348 (Version 1)
Quarter: 2013Q4

REPORT INFORMATION
  Report Type: Spontaneous
  Country: US (occurrence: US)
  Receive Date: 20131220
  Receipt Date: 20131220
  Transmission Date: 20140711
  Serious: Yes (Hospitalization, Disabling, Other)
  Sender: FDA-Public Use
  Company Number: PHHY2013US148321

PATIENT
  Age: 56 Year
  Sex: Female

DRUGS (5)
  1. DOXORUBICIN [Suspect]
     Indication: INVASIVE DUCTAL BREAST CARCINOMA
  2. CYCLOPHOSPHAMIDE [Suspect]
     Indication: INVASIVE DUCTAL BREAST CARCINOMA
  3. WINTHROP [Suspect]
     Indication: INVASIVE DUCTAL BREAST CARCINOMA
     Dosage: 100 MG/M2, UNK
  4. WINTHROP [Suspect]
     Dosage: 75 MG/M2, UNK
  5. PEGFILGRASTIM [Concomitant]
     Route: 065

REACTIONS (7)
  - Pyrexia [Unknown]
  - Palmar-plantar erythrodysaesthesia syndrome [Recovering/Resolving]
  - Pain in extremity [Recovering/Resolving]
  - Gait disturbance [Recovered/Resolved]
  - Arthralgia [Recovering/Resolving]
  - Skin exfoliation [Recovering/Resolving]
  - Hypokinesia [Recovering/Resolving]
